FAERS Safety Report 7875322-2 (Version None)
Quarter: 2011Q4

REPORT INFORMATION
  Report Type: 
  Country: None (occurrence: None)
  Receive Date: 20111031
  Receipt Date: 20111017
  Transmission Date: 20120403
  Serious: Yes (Hospitalization, Other)
  Sender: FDA-Public Use
  Company Number: PHFR2011GB04592

PATIENT
  Sex: Female

DRUGS (3)
  1. AMISULPRIDE [Suspect]
     Indication: SCHIZOPHRENIA
     Dosage: 400 MG/DAY
     Route: 048
  2. FLUOXETINE HCL [Concomitant]
     Indication: DEPRESSED MOOD
     Dosage: 60 MG/DAY
     Route: 048
  3. CLOZARIL [Suspect]
     Indication: SCHIZOPHRENIA
     Dosage: 300 MG/DAY
     Route: 048
     Dates: start: 20030325

REACTIONS (15)
  - PLATELET COUNT INCREASED [None]
  - BLADDER NEOPLASM [None]
  - ESCHERICHIA SEPSIS [None]
  - NEUTROPHIL COUNT INCREASED [None]
  - RHABDOMYOLYSIS [None]
  - BLOOD CREATINE PHOSPHOKINASE INCREASED [None]
  - DIABETES MELLITUS [None]
  - WHITE BLOOD CELL COUNT INCREASED [None]
  - CONFUSIONAL STATE [None]
  - SYNCOPE [None]
  - BLOOD UREA INCREASED [None]
  - URINARY TRACT INFECTION [None]
  - PYREXIA [None]
  - ARTHRITIS [None]
  - HALLUCINATION, AUDITORY [None]
